FAERS Safety Report 22182318 (Version 1)
Quarter: 2023Q2

REPORT INFORMATION
  Report Type: Spontaneous
  Country: US (occurrence: None)
  Receive Date: 20230406
  Receipt Date: 20230406
  Transmission Date: 20230722
  Serious: Yes (Life-Threatening, Disabling)
  Sender: FDA-Public Use
  Company Number: None

PATIENT
  Age: 73 Year
  Sex: Male
  Weight: 78.75 kg

DRUGS (8)
  1. ISOSORBIDE MONONITRATE [Suspect]
     Active Substance: ISOSORBIDE MONONITRATE
     Indication: Cardiac disorder
     Route: 048
  2. GLIMEPIRIDE [Concomitant]
     Active Substance: GLIMEPIRIDE
  3. ELIQUIS [Concomitant]
     Active Substance: APIXABAN
  4. nitroglycer [Concomitant]
  5. CARVEDILOL [Concomitant]
     Active Substance: CARVEDILOL
  6. DIAZEPAM [Concomitant]
     Active Substance: DIAZEPAM
  7. VITAMIN B COMPLEX [Concomitant]
     Active Substance: CYANOCOBALAMIN\DEXPANTHENOL\NIACINAMIDE\PYRIDOXINE HYDROCHLORIDE\RIBOFLAVIN 5^-PHOSPHATE SODIUM\THIA
  8. daily multiple vitamin [Concomitant]

REACTIONS (11)
  - Chest discomfort [None]
  - Chest pain [None]
  - Rhinorrhoea [None]
  - Muscle disorder [None]
  - Gait disturbance [None]
  - Fatigue [None]
  - Paralysis [None]
  - Tremor [None]
  - Tremor [None]
  - Restless legs syndrome [None]
  - Asthenia [None]

NARRATIVE: CASE EVENT DATE: 20230327
